FAERS Safety Report 5412984-3 (Version None)
Quarter: 2007Q3

REPORT INFORMATION
  Report Type: 
  Country: None (occurrence: None)
  Receive Date: 20070813
  Receipt Date: 20070806
  Transmission Date: 20080115
  Serious: Yes (Other)
  Sender: FDA-Public Use
  Company Number: BE-ALLERGAN-0708603US

PATIENT
  Sex: Female

DRUGS (1)
  1. DYSPORT [Suspect]
     Indication: TORTICOLLIS
     Dates: start: 20070301, end: 20070301

REACTIONS (1)
  - MYELITIS TRANSVERSE [None]
